FAERS Safety Report 6787865-3 (Version None)
Quarter: 2010Q2

REPORT INFORMATION
  Report Type: 
  Country: None (occurrence: None)
  Receive Date: 20100623
  Receipt Date: 20071102
  Transmission Date: 20101027
  Serious: Yes (Hospitalization)
  Sender: FDA-Public Use
  Company Number: US-PFIZER INC-2007092966

PATIENT
  Sex: Female
  Weight: 81.6 kg

DRUGS (2)
  1. SOLU-MEDROL [Suspect]
  2. CYTOXAN [Suspect]

REACTIONS (2)
  - DIVERTICULITIS [None]
  - GASTROINTESTINAL PERFORATION [None]
